FAERS Safety Report 9457309 (Version 2)
Quarter: 2013Q3

REPORT INFORMATION
  Report Type: Report from Study
  Country: VE (occurrence: VE)
  Receive Date: 20130814
  Receipt Date: 20130916
  Transmission Date: 20140515
  Serious: Yes (Hospitalization)
  Sender: FDA-Public Use
  Company Number: PHHY2013VE086668

PATIENT
  Age: 80 Year
  Sex: Female

DRUGS (7)
  1. ACLASTA [Suspect]
     Indication: OSTEOPOROSIS
     Dosage: 5 MG, ANNUAL
     Route: 042
     Dates: start: 20091001
  2. ACLASTA [Suspect]
     Dosage: 5 MG, ANNUAL
     Route: 042
     Dates: start: 20110909
  3. ACLASTA [Suspect]
     Dosage: 5 MG, ANNUAL
     Route: 042
     Dates: start: 2012
  4. BLOKIUM [Concomitant]
     Indication: HYPERTENSION
     Dosage: UNK UKN, UNK
     Route: 048
     Dates: start: 200204
  5. APROVEL [Concomitant]
     Indication: HYPERTENSION
     Dosage: 150 MG, UNK
     Route: 048
     Dates: start: 200204
  6. PLAVIX [Concomitant]
     Dosage: 75 MG, UNK
     Route: 048
     Dates: start: 200204
  7. CALCIUM + VITAMIN D                /01483701/ [Concomitant]
     Indication: OSTEOPOROSIS
     Dosage: 1 DF, UNK
     Route: 048
     Dates: start: 2012

REACTIONS (2)
  - Intervertebral disc protrusion [Recovered/Resolved]
  - Spinal pain [Recovering/Resolving]
